FAERS Safety Report 20065202 (Version 1)
Quarter: 2021Q4

REPORT INFORMATION
  Report Type: Report from Study
  Country: US (occurrence: US)
  Receive Date: 20211113
  Receipt Date: 20211113
  Transmission Date: 20220303
  Serious: Yes (Hospitalization, Other)
  Sender: FDA-Public Use
  Company Number: US-GILEAD-2021-0555465

PATIENT
  Sex: Male

DRUGS (10)
  1. AZTREONAM LYSINE [Suspect]
     Active Substance: AZTREONAM LYSINE
     Indication: Cystic fibrosis
     Dosage: 75 MG, TID, 28 DAYS ON, 28 DAYS OFF
     Route: 055
  2. PIROXICAM [Concomitant]
     Active Substance: PIROXICAM
  3. BACLOFEN [Concomitant]
     Active Substance: BACLOFEN
  4. MIRTAZAPINE [Concomitant]
     Active Substance: MIRTAZAPINE
  5. GABAPENTIN [Concomitant]
     Active Substance: GABAPENTIN
  6. PULMOZYME [Concomitant]
     Active Substance: DORNASE ALFA
  7. AMLODIPINE [Concomitant]
     Active Substance: AMLODIPINE BESYLATE
  8. PANTOPRAZOLE [Concomitant]
     Active Substance: PANTOPRAZOLE
  9. TOBRAMYCIN [Concomitant]
     Active Substance: TOBRAMYCIN
  10. PANCREAZE [Concomitant]
     Active Substance: PANCRELIPASE AMYLASE\PANCRELIPASE LIPASE\PANCRELIPASE PROTEASE

REACTIONS (1)
  - Intestinal obstruction [Unknown]
